FAERS Safety Report 4409762-0 (Version None)
Quarter: 2004Q3

REPORT INFORMATION
  Report Type: 
  Country: None (occurrence: None)
  Receive Date: 20040727
  Receipt Date: 20040727
  Transmission Date: 20050211
  Serious: Yes (Other)
  Sender: FDA-Public Use
  Company Number: None

PATIENT
  Age: 71 Year
  Sex: Male

DRUGS (10)
  1. MIRTAZAPINE [Suspect]
     Indication: DEPRESSION
     Dosage: 15-30MG  HS  ORAL
     Route: 048
     Dates: start: 20040507, end: 20040517
  2. ZYVOX [Suspect]
     Indication: GLYCOPEPTIDE ANTIBIOTIC RESISTANT ENTEROCOCCAL INFECTION
     Dosage: 600MG  B.I.D.  ORAL
     Route: 048
     Dates: start: 20040515, end: 20040524
  3. ZYVOX [Suspect]
     Indication: URINARY TRACT INFECTION
     Dosage: 600MG  B.I.D.  ORAL
     Route: 048
     Dates: start: 20040515, end: 20040524
  4. MULTI-VITAMIN [Concomitant]
  5. ERYTHROPOETIN [Concomitant]
  6. PYRIDOXINE [Concomitant]
  7. CALCIUM CARBONATE [Concomitant]
  8. FOLIC ACID [Concomitant]
  9. AMIODARONE HCL [Concomitant]
  10. METOCLOPRAMIDE [Concomitant]

REACTIONS (7)
  - ABNORMAL BEHAVIOUR [None]
  - AGITATION [None]
  - CONFUSIONAL STATE [None]
  - DRUG INTERACTION [None]
  - HALLUCINATION [None]
  - MEMORY IMPAIRMENT [None]
  - TREMOR [None]
